FAERS Safety Report 5763204-1 (Version None)
Quarter: 2008Q2

REPORT INFORMATION
  Report Type: 
  Country: None (occurrence: None)
  Receive Date: 20080609
  Receipt Date: 20080528
  Transmission Date: 20081010
  Serious: Yes (Hospitalization)
  Sender: FDA-Public Use
  Company Number: US-ELI_LILLY_AND_COMPANY-US200805005697

PATIENT
  Age: 76 Year
  Sex: Female

DRUGS (3)
  1. CYMBALTA [Suspect]
     Indication: NEUROPATHY PERIPHERAL
     Dosage: 60 MG, EACH EVENING
     Dates: start: 20070801
  2. NAMENDA [Concomitant]
  3. ARICEPT [Concomitant]

REACTIONS (2)
  - OEDEMA PERIPHERAL [None]
  - SKIN LACERATION [None]
